FAERS Safety Report 10516803 (Version 1)
Quarter: 2014Q4

REPORT INFORMATION
  Report Type: Spontaneous
  Country: US (occurrence: US)
  Receive Date: 20141014
  Receipt Date: 20141014
  Transmission Date: 20150528
  Serious: Yes (Other)
  Sender: FDA-Public Use
  Company Number: US-BRISTOL-MYERS SQUIBB COMPANY-21472949

PATIENT
  Sex: Female

DRUGS (1)
  1. YERVOY [Suspect]
     Active Substance: IPILIMUMAB
     Indication: MALIGNANT MELANOMA
     Dosage: TAKEN 4 INFUSIONS ?LAST DOSE ON 22AUG2014
     Route: 042
     Dates: start: 20140530

REACTIONS (1)
  - Optic neuritis [Not Recovered/Not Resolved]
